FAERS Safety Report 7896646-9 (Version None)
Quarter: 2011Q4

REPORT INFORMATION
  Report Type: 
  Country: None (occurrence: None)
  Receive Date: 20111107
  Receipt Date: 20111031
  Transmission Date: 20120403
  Serious: No
  Sender: FDA-Public Use
  Company Number: US-BIOGENIDEC-2011BI012600

PATIENT
  Sex: Female

DRUGS (2)
  1. TYSABRI [Suspect]
     Indication: MULTIPLE SCLEROSIS
     Route: 042
     Dates: start: 20080501
  2. DIAZEPAM [Concomitant]
     Indication: ANXIETY

REACTIONS (8)
  - ARTHROPATHY [None]
  - HYPOAESTHESIA [None]
  - PAIN IN EXTREMITY [None]
  - BONE PAIN [None]
  - BACK PAIN [None]
  - ANXIETY [None]
  - ARTHRALGIA [None]
  - ROAD TRAFFIC ACCIDENT [None]
